FAERS Safety Report 20130312 (Version 1)
Quarter: 2021Q4

REPORT INFORMATION
  Report Type: Spontaneous
  Country: US (occurrence: US)
  Receive Date: 20211130
  Receipt Date: 20211130
  Transmission Date: 20220303
  Serious: No
  Sender: FDA-Public Use
  Company Number: US-AMNEAL PHARMACEUTICALS-2021-AMRX-03671

PATIENT
  Sex: Female

DRUGS (2)
  1. ESTRADIOL TRANSDERMAL SYSTEM [Suspect]
     Active Substance: ESTRADIOL
     Indication: Hot flush
     Dosage: UNK
     Route: 062
  2. ESTRADIOL TRANSDERMAL SYSTEM [Suspect]
     Active Substance: ESTRADIOL
     Indication: Blood oestrogen decreased

REACTIONS (2)
  - Drug ineffective [Unknown]
  - Product substitution issue [Unknown]
